FAERS Safety Report 9654383 (Version 1)
Quarter: 2013Q4

REPORT INFORMATION
  Report Type: Spontaneous
  Country: US (occurrence: None)
  Receive Date: 20131018
  Receipt Date: 20131018
  Transmission Date: 20140711
  Serious: Yes (Other)
  Sender: FDA-Public Use
  Company Number: 2013034952

PATIENT
  Age: 60 Year
  Sex: Female
  Weight: 97.07 kg

DRUGS (18)
  1. PRIVIGEN [Suspect]
     Indication: IMMUNODEFICIENCY COMMON VARIABLE
     Dosage: 40 G 1X/28 DAYS
     Route: 042
     Dates: start: 20130305, end: 20130305
  2. DIPHENHYDRAMINE [Concomitant]
  3. LIDOCAINE/PRILOCAINE (EMLA) [Concomitant]
  4. SODIUM CHLORIDE [Concomitant]
  5. EPI-PEN (EPINEPHRINE HYDROCHLORIDE) [Concomitant]
  6. ALBUTEROL INHALER (SALBUTAMOL) [Concomitant]
  7. CYMBALTA (DULOXETINE HYDROCHLORIDE) [Concomitant]
  8. KLONOPIN (CLONAZEPAM) [Concomitant]
  9. LASIX (FUROSEMIDE) [Concomitant]
  10. NASONEX (MOMETASONE FUROATE) [Concomitant]
  11. POTASSIUM CL ER (POTASSIUM CHLORIDE) [Concomitant]
  12. BUSPIRONE HCL [Concomitant]
  13. GABAPENTIN [Concomitant]
  14. TRAZODONE [Concomitant]
  15. CLARITIN (LORATADINE) [Concomitant]
  16. ACIPHEX (RABEPRAZOLE SODIUM) [Concomitant]
  17. VITAMIN D (ERGOCALCIFEROL) [Concomitant]
  18. ADVAIR (SERETIDE) [Concomitant]

REACTIONS (9)
  - Infusion related reaction [None]
  - Rash [None]
  - Myalgia [None]
  - Back pain [None]
  - Headache [None]
  - Sinusitis [None]
  - Bronchitis [None]
  - Asthma [None]
  - Pneumonia [None]
